FAERS Safety Report 15689802 (Version 1)
Quarter: 2018Q4

REPORT INFORMATION
  Report Type: Spontaneous
  Country: US (occurrence: US)
  Receive Date: 20181205
  Receipt Date: 20181205
  Transmission Date: 20190205
  Serious: Yes (Hospitalization, Disabling)
  Sender: FDA-Public Use
  Company Number: US-JNJFOC-20181201843

PATIENT
  Age: 65 Year
  Sex: Male

DRUGS (2)
  1. INVOKAMET [Suspect]
     Active Substance: CANAGLIFLOZIN\METFORMIN HYDROCHLORIDE
     Indication: TYPE 2 DIABETES MELLITUS
     Route: 048
  2. INVOKANA [Suspect]
     Active Substance: CANAGLIFLOZIN
     Indication: TYPE 2 DIABETES MELLITUS
     Route: 048
     Dates: start: 20150510

REACTIONS (8)
  - Osteomyelitis [Unknown]
  - Diabetic wound [Unknown]
  - Leg amputation [Unknown]
  - Toe amputation [Unknown]
  - Sepsis [Unknown]
  - Gangrene [Unknown]
  - Foot amputation [Unknown]
  - Necrosis [Unknown]

NARRATIVE: CASE EVENT DATE: 20170406
